FAERS Safety Report 5562103-8 (Version None)
Quarter: 2007Q4

REPORT INFORMATION
  Report Type: 
  Country: None (occurrence: None)
  Receive Date: 20071215
  Receipt Date: 20070928
  Transmission Date: 20080405
  Serious: No
  Sender: FDA-Public Use
  Company Number: US-AMGEN-KDL245346

PATIENT
  Sex: Female

DRUGS (7)
  1. ENBREL [Suspect]
     Indication: RHEUMATOID ARTHRITIS
     Route: 058
     Dates: start: 20070606
  2. ASPIRIN [Concomitant]
  3. CYTOMEL [Concomitant]
  4. COZAAR [Concomitant]
  5. METHOTREXATE [Concomitant]
     Route: 048
     Dates: start: 20060901
  6. SYNTHROID [Concomitant]
  7. NEXIUM [Concomitant]

REACTIONS (3)
  - INJECTION SITE REACTION [None]
  - OEDEMA PERIPHERAL [None]
  - RHEUMATOID ARTHRITIS [None]
